FAERS Safety Report 16009860 (Version 1)
Quarter: 2019Q1

REPORT INFORMATION
  Report Type: Spontaneous
  Country: FR (occurrence: FR)
  Receive Date: 20190227
  Receipt Date: 20190227
  Transmission Date: 20190418
  Serious: Yes (Death, Hospitalization, Other)
  Sender: FDA-Public Use
  Company Number: FR-BRISTOL-MYERS SQUIBB COMPANY-BMS-2019-017553

PATIENT
  Age: 91 Year
  Sex: Female
  Weight: 72 kg

DRUGS (3)
  1. COUMADIN [Suspect]
     Active Substance: WARFARIN SODIUM
     Indication: PRODUCT USED FOR UNKNOWN INDICATION
     Dosage: 2 MG, 1 DAY
     Route: 048
     Dates: start: 20190115, end: 20190129
  2. COUMADIN [Suspect]
     Active Substance: WARFARIN SODIUM
     Indication: THROMBOSIS PROPHYLAXIS
     Dosage: 2 MG, 1 DAY
     Route: 048
     Dates: start: 201401, end: 20181227
  3. LANSOPRAZOLE. [Concomitant]
     Active Substance: LANSOPRAZOLE
     Indication: PROPHYLAXIS AGAINST GASTROINTESTINAL ULCER
     Dosage: 30 MG, 1 DAY
     Route: 048
     Dates: start: 19980101

REACTIONS (2)
  - Death [Fatal]
  - Rash morbilliform [Not Recovered/Not Resolved]

NARRATIVE: CASE EVENT DATE: 20181223
